FAERS Safety Report 5761734-X (Version None)
Quarter: 2008Q2

REPORT INFORMATION
  Report Type: 
  Country: None (occurrence: None)
  Receive Date: 20080602
  Receipt Date: 20080516
  Transmission Date: 20081010
  Serious: Yes (Hospitalization)
  Sender: FDA-Public Use
  Company Number: CLOF-10629

PATIENT
  Age: 80 Year
  Sex: Female

DRUGS (7)
  1. CLOFARABINE (CLOFARABINE) 47MG [Suspect]
     Indication: ACUTE MYELOID LEUKAEMIA
     Dosage: 30 MG/M2, QDX5, INTRAVENOUS; 20 MG/M2, QDX5, INTRAVENOUS
     Route: 042
     Dates: start: 20070510, end: 20070514
  2. CLOFARABINE (CLOFARABINE) 47MG [Suspect]
     Indication: ACUTE MYELOID LEUKAEMIA
     Dosage: 30 MG/M2, QDX5, INTRAVENOUS; 20 MG/M2, QDX5, INTRAVENOUS
     Route: 042
     Dates: start: 20070619, end: 20070623
  3. COLACE (DOCUSATE SODIUM) [Concomitant]
  4. PROTONIX [Concomitant]
  5. COREG [Concomitant]
  6. VALSARTAN [Concomitant]
  7. SENOKOT (SENNA ALEXANDRINA) [Concomitant]

REACTIONS (12)
  - ASTHENIA [None]
  - CLOSTRIDIAL INFECTION [None]
  - DIARRHOEA [None]
  - FEBRILE NEUTROPENIA [None]
  - HYPOKALAEMIA [None]
  - HYPOMAGNESAEMIA [None]
  - HYPONATRAEMIA [None]
  - OEDEMA PERIPHERAL [None]
  - OESOPHAGEAL CANDIDIASIS [None]
  - ORAL CANDIDIASIS [None]
  - PAIN IN EXTREMITY [None]
  - WHITE BLOOD CELL COUNT DECREASED [None]
